FAERS Safety Report 5148658-6 (Version None)
Quarter: 2006Q4

REPORT INFORMATION
  Report Type: 
  Country: None (occurrence: None)
  Receive Date: 20061107
  Receipt Date: 20061026
  Transmission Date: 20070319
  Serious: Yes (Hospitalization)
  Sender: FDA-Public Use
  Company Number: 06H-163-0310958-00

PATIENT
  Age: 55 Year
  Sex: Male

DRUGS (2)
  1. DOBUTAMINE INJECTION (DOBUTAMINE HYDROCHLORIDE INJECTION) (DOBUTAMINE [Suspect]
     Indication: STRESS ECHOCARDIOGRAM
     Dosage: 40 MCG/KG/MIN, INFUSION
  2. ATROPINE [Concomitant]

REACTIONS (7)
  - ACUTE MYOCARDIAL INFARCTION [None]
  - CORONARY ARTERY OCCLUSION [None]
  - CORONARY ARTERY STENOSIS [None]
  - ECHOCARDIOGRAM ABNORMAL [None]
  - HYPOTENSION [None]
  - MYOCARDIAL ISCHAEMIA [None]
  - VENTRICULAR DYSKINESIA [None]
